FAERS Safety Report 9717054 (Version 1)
Quarter: 2013Q4

REPORT INFORMATION
  Report Type: Spontaneous
  Country: US (occurrence: US)
  Receive Date: 20131127
  Receipt Date: 20131127
  Transmission Date: 20140711
  Serious: No
  Sender: FDA-Public Use
  Company Number: US-GILEAD-2009-0020794

PATIENT
  Sex: Female
  Weight: 131.54 kg

DRUGS (11)
  1. LETAIRIS [Suspect]
     Indication: PULMONARY ARTERIAL HYPERTENSION
     Route: 048
     Dates: start: 20081204
  2. FUROSEMIDE [Concomitant]
  3. COREG [Concomitant]
  4. LIPITOR [Concomitant]
  5. LISINOPRIL [Concomitant]
  6. MELOXICAM [Concomitant]
  7. ARAVA [Concomitant]
  8. PAXIL [Concomitant]
  9. PREDNISONE [Concomitant]
  10. TRAMADOL [Concomitant]
  11. POTASSIUM CHLORIDE [Concomitant]

REACTIONS (1)
  - Rash pruritic [Unknown]
